FAERS Safety Report 7430049-6 (Version None)
Quarter: 2011Q2

REPORT INFORMATION
  Report Type: 
  Country: None (occurrence: None)
  Receive Date: 20110421
  Receipt Date: 20081001
  Transmission Date: 20111010
  Serious: Yes (Other)
  Sender: FDA-Public Use
  Company Number: PR-BAYER-200711440BWH

PATIENT
  Age: 68 Year
  Sex: Female

DRUGS (1)
  1. TRASYLOL [Suspect]
     Indication: PRODUCT USED FOR UNKNOWN INDICATION
     Dosage: UNK
     Dates: start: 20001017

REACTIONS (7)
  - INJURY [None]
  - ANXIETY [None]
  - CEREBROVASCULAR ACCIDENT [None]
  - PAIN [None]
  - RENAL IMPAIRMENT [None]
  - RENAL FAILURE [None]
  - EMOTIONAL DISTRESS [None]
